FAERS Safety Report 5883328-8 (Version None)
Quarter: 2008Q3

REPORT INFORMATION
  Report Type: 
  Country: None (occurrence: None)
  Receive Date: 20080911
  Receipt Date: 20080911
  Transmission Date: 20090109
  Serious: Yes (Other)
  Sender: FDA-Public Use
  Company Number: None

PATIENT
  Age: 33 Year
  Sex: Female
  Weight: 53.978 kg

DRUGS (1)
  1. XYZAL [Suspect]
     Indication: RHINITIS ALLERGIC
     Dosage: 5 MG 1/DAY PO
     Route: 048
     Dates: start: 20071215, end: 20080512

REACTIONS (2)
  - DIARRHOEA [None]
  - WEIGHT DECREASED [None]
